FAERS Safety Report 10267381 (Version 2)
Quarter: 2014Q2

REPORT INFORMATION
  Report Type: Spontaneous
  Country: PH (occurrence: PH)
  Receive Date: 20140630
  Receipt Date: 20140630
  Transmission Date: 20141212
  Serious: Yes (Life-Threatening, Hospitalization)
  Sender: FDA-Public Use
  Company Number: PHHY2014PH062986

PATIENT
  Age: 81 Year
  Sex: Male

DRUGS (5)
  1. ZOMETA [Suspect]
     Indication: METASTASES TO BONE
     Dosage: UNK UKN, UNK
     Dates: start: 20140317, end: 20140317
  2. GLUCOBAY [Concomitant]
     Indication: DIABETES MELLITUS
     Dosage: UNK UKN, UNK
  3. BETALOC [Concomitant]
     Indication: HYPERTENSION
     Dosage: UNK UKN, UNK
  4. NORVASC [Concomitant]
     Indication: HYPERTENSION
     Dosage: UNK UKN, UNK
  5. GLUCOVANCE [Concomitant]
     Indication: DIABETES MELLITUS
     Dosage: UNK UKN, UNK

REACTIONS (6)
  - Renal failure [Recovered/Resolved]
  - Blood creatinine increased [Recovered/Resolved]
  - Abasia [Recovered/Resolved]
  - Urine output decreased [Recovered/Resolved]
  - Asthenia [Recovered/Resolved]
  - Pain [Unknown]
